FAERS Safety Report 11977085 (Version 1)
Quarter: 2016Q1

REPORT INFORMATION
  Report Type: Spontaneous
  Country: US (occurrence: US)
  Receive Date: 20160129
  Receipt Date: 20160129
  Transmission Date: 20160526
  Serious: Yes (Life-Threatening, Hospitalization, Other)
  Sender: FDA-Public Use
  Company Number: US-GLAXOSMITHKLINE-US2016009885

PATIENT
  Sex: Female

DRUGS (2)
  1. ADVAIR DISKUS [Suspect]
     Active Substance: FLUTICASONE PROPIONATE\SALMETEROL XINAFOATE
     Dosage: 3 PUFF(S), QID
     Route: 055
  2. ADVAIR DISKUS [Suspect]
     Active Substance: FLUTICASONE PROPIONATE\SALMETEROL XINAFOATE
     Indication: ASTHMA
     Dosage: 1 PUFF(S), QD
     Route: 055
     Dates: start: 2002

REACTIONS (27)
  - Underdose [Unknown]
  - Device use error [Unknown]
  - Cardiac arrest [Recovered/Resolved]
  - Joint injury [Not Recovered/Not Resolved]
  - Ligament injury [Not Recovered/Not Resolved]
  - Pneumonia [Recovered/Resolved]
  - Presyncope [Recovered/Resolved]
  - Intentional overdose [Unknown]
  - Meniscus injury [Not Recovered/Not Resolved]
  - Muscle injury [Not Recovered/Not Resolved]
  - Stress [Unknown]
  - Dizziness [Recovered/Resolved]
  - Pain [Not Recovered/Not Resolved]
  - Fall [Recovered/Resolved]
  - Bronchitis [Recovered/Resolved]
  - Insomnia [Unknown]
  - Hypoaesthesia [Recovered/Resolved]
  - Intervertebral disc injury [Recovered/Resolved]
  - Myocardial infarction [Recovered/Resolved]
  - Asthma [Unknown]
  - Stent placement [Recovered/Resolved]
  - Musculoskeletal pain [Recovered/Resolved]
  - Atrioventricular block [Recovered/Resolved]
  - Haemoptysis [Recovered/Resolved]
  - Back injury [Recovered/Resolved]
  - Spinal operation [Recovered/Resolved]
  - Dyspnoea [Unknown]
